FAERS Safety Report 25572034 (Version 1)
Quarter: 2025Q3

REPORT INFORMATION
  Report Type: Spontaneous
  Country: IN (occurrence: IN)
  Receive Date: 20250717
  Receipt Date: 20250717
  Transmission Date: 20251021
  Serious: Yes (Other)
  Sender: PFIZER
  Company Number: IN-PFIZER INC-2020268609

PATIENT
  Age: 70 Year
  Sex: Female

DRUGS (13)
  1. PALBOCICLIB [Suspect]
     Active Substance: PALBOCICLIB
     Indication: Breast cancer metastatic
     Route: 048
     Dates: start: 20190803, end: 202010
  2. PALBOCICLIB [Suspect]
     Active Substance: PALBOCICLIB
     Route: 048
     Dates: start: 20210304
  3. PALBOCICLIB [Suspect]
     Active Substance: PALBOCICLIB
     Indication: Breast cancer metastatic
     Route: 048
  4. LETROZOLE [Concomitant]
     Active Substance: LETROZOLE
     Indication: Breast cancer metastatic
     Dates: end: 202010
  5. LETROZOLE [Concomitant]
     Active Substance: LETROZOLE
  6. CALCIUM CARBONATE\CHOLECALCIFEROL [Concomitant]
     Active Substance: CALCIUM CARBONATE\CHOLECALCIFEROL
     Dosage: 1 DF, 1X/DAY
     Dates: end: 202010
  7. CALCIUM CARBONATE\CHOLECALCIFEROL [Concomitant]
     Active Substance: CALCIUM CARBONATE\CHOLECALCIFEROL
     Dosage: 500 MG, DAILY
  8. DENOSUMAB [Concomitant]
     Active Substance: DENOSUMAB
     Dosage: 120 MG, MONTHLY
     Route: 058
     Dates: end: 202010
  9. DENOSUMAB [Concomitant]
     Active Substance: DENOSUMAB
     Route: 058
  10. DENOSUMAB [Concomitant]
     Active Substance: DENOSUMAB
     Route: 058
  11. BECOSULES [ASCORBIC ACID;VITAMIN B NOS] [Concomitant]
     Dosage: 1 DF, 1X/DAY
  12. FOLVITE [Concomitant]
     Active Substance: FOLIC ACID
     Dosage: UNK, 1X/DAY
  13. VITAMIN D3 [Concomitant]
     Active Substance: CHOLECALCIFEROL
     Dosage: 6000 U (60K ONCE A MONTH)

REACTIONS (6)
  - Metastases to bone [Unknown]
  - Lower limb fracture [Unknown]
  - Pleural effusion [Unknown]
  - White blood cell count decreased [Unknown]
  - Neutrophil count decreased [Unknown]
  - Full blood count decreased [Unknown]
